FAERS Safety Report 18717090 (Version 2)
Quarter: 2021Q2

REPORT INFORMATION
  Report Type: Other
  Country: US (occurrence: US)
  Receive Date: 20210108
  Receipt Date: 20210401
  Transmission Date: 20210717
  Serious: Yes (Hospitalization, Other)
  Sender: FDA-Public Use
  Company Number: US-ROCHE-2684319

PATIENT
  Age: 60 Year
  Sex: Female
  Weight: 86.26 kg

DRUGS (7)
  1. OCREVUS [Suspect]
     Active Substance: OCRELIZUMAB
     Indication: RELAPSING-REMITTING MULTIPLE SCLEROSIS
     Dosage: PRESCRIBED AS 300 MG AND 600 MG ONCE IN 24 WEEKS. TAKES 4 HOURS ;ONGOING: YES
     Route: 042
     Dates: start: 2018
  2. OCREVUS [Suspect]
     Active Substance: OCRELIZUMAB
     Dosage: PLANNED RESTART 31?DEC?2020; ONGOING: NO
     Route: 042
     Dates: end: 201812
  3. LEXAPRO [Concomitant]
     Active Substance: ESCITALOPRAM OXALATE
     Indication: DEPRESSION
  4. LEXAPRO [Concomitant]
     Active Substance: ESCITALOPRAM OXALATE
     Indication: ANXIETY
  5. MODAFINIL. [Concomitant]
     Active Substance: MODAFINIL
     Indication: MULTIPLE SCLEROSIS
     Dosage: 1 TWICE A DAY AT 8 AM AND 12 PM ;ONGOING : YES
     Route: 048
  6. OCREVUS [Suspect]
     Active Substance: OCRELIZUMAB
     Route: 042
  7. MODAFINIL. [Concomitant]
     Active Substance: MODAFINIL
     Indication: FATIGUE

REACTIONS (4)
  - Multiple sclerosis relapse [Recovered/Resolved]
  - Road traffic accident [Unknown]
  - Upper limb fracture [Recovered/Resolved]
  - Post-traumatic stress disorder [Not Recovered/Not Resolved]

NARRATIVE: CASE EVENT DATE: 201908
